FAERS Safety Report 23755016 (Version 1)
Quarter: 2024Q2

REPORT INFORMATION
  Report Type: Spontaneous
  Country: US (occurrence: US)
  Receive Date: 20240418
  Receipt Date: 20240418
  Transmission Date: 20240716
  Serious: Yes (Other)
  Sender: FDA-Public Use
  Company Number: US-STRIDES ARCOLAB LIMITED-2023SP016666

PATIENT
  Age: 22 Year
  Sex: Male

DRUGS (1)
  1. AMOXICILLIN [Suspect]
     Active Substance: AMOXICILLIN
     Indication: Antibiotic prophylaxis
     Dosage: 2 GRAM
     Route: 065

REACTIONS (3)
  - Drug hypersensitivity [Unknown]
  - Treatment noncompliance [Unknown]
  - Product dose omission in error [Unknown]
